FAERS Safety Report 13272942 (Version 1)
Quarter: 2017Q1

REPORT INFORMATION
  Report Type: Spontaneous
  Country: US (occurrence: US)
  Receive Date: 20170227
  Receipt Date: 20170227
  Transmission Date: 20170428
  Serious: No
  Sender: FDA-Public Use
  Company Number: US-SHIRE-US201702090

PATIENT
  Sex: Female
  Weight: 113.38 kg

DRUGS (4)
  1. PRISTIQ EXTENDED-RELEASE [Concomitant]
     Active Substance: DESVENLAFAXINE SUCCINATE
     Indication: ANXIETY
     Dosage: 100 MG, 1X/DAY:QD
     Route: 048
  2. CHLORPHENIRAMINE                   /00072501/ [Concomitant]
     Active Substance: CHLORPHENIRAMINE
     Indication: SINUS DISORDER
     Dosage: 4 MG, 1X/DAY:QD
     Route: 048
  3. CLONAZEPAM. [Concomitant]
     Active Substance: CLONAZEPAM
     Indication: SLEEP DISORDER
     Dosage: 0.5 MG, 1X/DAY:QD
     Route: 048
  4. ADDERALL XR [Suspect]
     Active Substance: AMPHETAMINE ASPARTATE\AMPHETAMINE SULFATE\DEXTROAMPHETAMINE SACCHARATE\DEXTROAMPHETAMINE SULFATE
     Indication: ATTENTION DEFICIT/HYPERACTIVITY DISORDER
     Dosage: UNK, 1X/DAY:QD  (50 OR 60 MG)
     Route: 048
     Dates: end: 2011

REACTIONS (3)
  - Prescribed overdose [Recovered/Resolved]
  - Palpitations [Recovered/Resolved]
  - Agitation [Recovered/Resolved]
